FAERS Safety Report 8587742 (Version 2)
Quarter: 2012Q4

REPORT INFORMATION
  Report Type: 
  Country: US (occurrence: US)
  Receive Date: 20120531
  Receipt Date: 20120907
  Transmission Date: 20130627
  Serious: Yes (Other)
  Sender: FDA-Public Use
  Company Number: US-ASTELLAS-2012US005059

PATIENT
  Age: 78 None
  Sex: Female

DRUGS (2)
  1. TARCEVA [Suspect]
     Indication: PRODUCT USED FOR UNKNOWN INDICATION
     Dosage: UNK
     Route: 048
     Dates: start: 2008
  2. TARCEVA [Suspect]
     Dosage: UNK
     Route: 048

REACTIONS (10)
  - Eye haemorrhage [Unknown]
  - Arthralgia [Unknown]
  - Confusional state [Unknown]
  - Tongue ulceration [Unknown]
  - Stomatitis [Unknown]
  - Diarrhoea [Unknown]
  - Fatigue [Unknown]
  - Chills [Unknown]
  - Pyrexia [Unknown]
  - Hypoaesthesia [Unknown]
